FAERS Safety Report 7818903-4 (Version None)
Quarter: 2011Q4

REPORT INFORMATION
  Report Type: 
  Country: None (occurrence: None)
  Receive Date: 20111018
  Receipt Date: 20111006
  Transmission Date: 20120403
  Serious: Yes (Hospitalization)
  Sender: FDA-Public Use
  Company Number: GB-RANBAXY-2011R1-48890

PATIENT
  Age: 75 Year
  Sex: Male

DRUGS (4)
  1. SIMVASTATIN [Suspect]
     Indication: HYPERCHOLESTEROLAEMIA
     Dosage: 40 MG, QD
     Route: 048
     Dates: end: 20110923
  2. LOSARTAN POTASSIUM [Concomitant]
     Indication: PRODUCT USED FOR UNKNOWN INDICATION
     Dosage: UNK
     Route: 065
  3. ASPIRIN [Concomitant]
     Indication: PRODUCT USED FOR UNKNOWN INDICATION
     Dosage: UNK
     Route: 065
  4. AMLODIPINE [Suspect]
     Indication: PERIPHERAL COLDNESS
     Dosage: 5 MG, QD
     Route: 048
     Dates: start: 20110601, end: 20110923

REACTIONS (6)
  - PAIN IN EXTREMITY [None]
  - MUSCULAR WEAKNESS [None]
  - GAIT DISTURBANCE [None]
  - MYOPATHY [None]
  - URINE ODOUR ABNORMAL [None]
  - URINE COLOUR ABNORMAL [None]
